FAERS Safety Report 9096526 (Version 1)
Quarter: 2013Q1

REPORT INFORMATION
  Report Type: Spontaneous
  Country: AR (occurrence: AR)
  Receive Date: 20130211
  Receipt Date: 20130211
  Transmission Date: 20140127
  Serious: Yes (Hospitalization)
  Sender: FDA-Public Use
  Company Number: PHHY2013AR012537

PATIENT
  Age: 73 Year
  Sex: Female

DRUGS (2)
  1. DIOVAN [Suspect]
     Indication: HYPERTENSION
     Dosage: UNK UKN, UNK
     Dates: start: 201301
  2. GALVUS [Suspect]
     Indication: DIABETES MELLITUS
     Dosage: UNK UKN, UNK
     Dates: start: 201301

REACTIONS (2)
  - Limb injury [Recovering/Resolving]
  - Gun shot wound [Recovering/Resolving]
